FAERS Safety Report 17398353 (Version 1)
Quarter: 2020Q1

REPORT INFORMATION
  Report Type: Spontaneous
  Country: US (occurrence: US)
  Receive Date: 20200210
  Receipt Date: 20200210
  Transmission Date: 20200409
  Serious: No
  Sender: FDA-Public Use
  Company Number: US-VAYAPHARMA-2018-US-008972

PATIENT
  Age: 11 Year
  Sex: Male
  Weight: 32.21 kg

DRUGS (2)
  1. ASMANEX [Concomitant]
     Active Substance: MOMETASONE FUROATE
     Dosage: 110 MCG DAILY
  2. VAYARIN [Suspect]
     Active Substance: DOCONEXENT\ICOSAPENT\PHOSPHATIDYL SERINE
     Indication: ATTENTION DEFICIT/HYPERACTIVITY DISORDER
     Dosage: 2 CAPSULES DAILY
     Route: 048
     Dates: start: 20180201, end: 20180528

REACTIONS (3)
  - Condition aggravated [Unknown]
  - Tic [Unknown]
  - Anger [Unknown]

NARRATIVE: CASE EVENT DATE: 20180420
